FAERS Safety Report 9356147 (Version 3)
Quarter: 2013Q3

REPORT INFORMATION
  Report Type: Report from Study
  Country: US (occurrence: US)
  Receive Date: 20130619
  Receipt Date: 20130828
  Transmission Date: 20140515
  Serious: Yes (Other)
  Sender: FDA-Public Use
  Company Number: US-AMGEN-USACT2013030152

PATIENT
  Age: 66 Year
  Sex: Male
  Weight: 108.2 kg

DRUGS (2)
  1. PANITUMUMAB [Suspect]
     Indication: COLORECTAL CANCER
     Dosage: 654.8 MG, Q2WK
     Route: 042
     Dates: start: 20130418
  2. DABRAFENIB [Concomitant]
     Indication: COLORECTAL CANCER
     Dosage: 150 MG, BID
     Route: 048
     Dates: start: 20130418

REACTIONS (1)
  - Pyrexia [Recovered/Resolved]
